FAERS Safety Report 13038417 (Version 2)
Quarter: 2016Q4

REPORT INFORMATION
  Report Type: Report from Study
  Country: BR (occurrence: BR)
  Receive Date: 20161219
  Receipt Date: 20161228
  Transmission Date: 20170207
  Serious: Yes (Other)
  Sender: FDA-Public Use
  Company Number: BR-ROCHE-1745446

PATIENT

DRUGS (12)
  1. TRASTUZUMAB [Suspect]
     Active Substance: TRASTUZUMAB
     Dosage: 391 MG, 3 VIALS
     Route: 042
     Dates: start: 20151020
  2. TRASTUZUMAB [Suspect]
     Active Substance: TRASTUZUMAB
     Dosage: 360MG, 1 VIAL
     Route: 042
     Dates: start: 20160202
  3. TRASTUZUMAB [Suspect]
     Active Substance: TRASTUZUMAB
     Dosage: 360MG, 1 VIAL
     Route: 042
     Dates: start: 20160315
  4. TRASTUZUMAB [Suspect]
     Active Substance: TRASTUZUMAB
     Dosage: 360MG, 1 VIAL
     Route: 042
     Dates: start: 20160405
  5. TRASTUZUMAB [Suspect]
     Active Substance: TRASTUZUMAB
     Dosage: 396 MG, 3 VIALS.
     Route: 042
     Dates: start: 20150929
  6. TRASTUZUMAB [Suspect]
     Active Substance: TRASTUZUMAB
     Dosage: 356.8 MG, 1 VIAL
     Route: 042
     Dates: start: 20160808
  7. TRASTUZUMAB [Suspect]
     Active Substance: TRASTUZUMAB
     Dosage: 348 MG, 1 VIAL
     Route: 042
     Dates: start: 20160830
  8. TRASTUZUMAB [Suspect]
     Active Substance: TRASTUZUMAB
     Dosage: 360MG; 1 VIAL
     Route: 042
     Dates: start: 20160112
  9. TRASTUZUMAB [Suspect]
     Active Substance: TRASTUZUMAB
     Dosage: 348 MG, 1 VIAL
     Route: 042
     Dates: start: 20160920
  10. TRASTUZUMAB [Suspect]
     Active Substance: TRASTUZUMAB
     Dosage: 366 MG, 1 VIAL
     Route: 042
     Dates: start: 20160223
  11. TRASTUZUMAB [Suspect]
     Active Substance: TRASTUZUMAB
     Dosage: 354 MG, 1 VIAL
     Route: 042
     Dates: start: 20160719
  12. TRASTUZUMAB [Suspect]
     Active Substance: TRASTUZUMAB
     Indication: GASTRIC CANCER
     Dosage: 396 MG, 3 VIALS
     Route: 042
     Dates: start: 20150908

REACTIONS (5)
  - Weight decreased [Unknown]
  - Abdominal pain [Recovered/Resolved]
  - Inguinal hernia [Unknown]
  - Pneumonia [Recovered/Resolved]
  - Anaemia [Unknown]

NARRATIVE: CASE EVENT DATE: 20160425
